FAERS Safety Report 5337731-5 (Version None)
Quarter: 2007Q1

REPORT INFORMATION
  Report Type: 
  Country: None (occurrence: None)
  Receive Date: 20070308
  Receipt Date: 20061211
  Transmission Date: 20070707
  Serious: No
  Sender: FDA-Public Use
  Company Number: 2006-BP-14371BP

PATIENT
  Age: 84 Year
  Sex: Male

DRUGS (9)
  1. SPIRIVA [Suspect]
     Indication: DYSPNOEA
     Dosage: 18 MCG (18 MCG, 1 IN 1 D)
     Dates: start: 20061208
  2. ASPIRIN [Concomitant]
  3. GLIPIZIDE XL (GLIPIZIDE) [Concomitant]
  4. METFORMIN HCL [Concomitant]
  5. LANOXIN [Concomitant]
  6. LASIX [Concomitant]
  7. ACEON [Concomitant]
  8. PLAVIX [Concomitant]
  9. THEOPHYLLINE [Concomitant]

REACTIONS (1)
  - DRUG INEFFECTIVE [None]
